FAERS Safety Report 4814714-2 (Version None)
Quarter: 2005Q4

REPORT INFORMATION
  Report Type: 
  Country: None (occurrence: None)
  Receive Date: 20051028
  Receipt Date: 20050214
  Transmission Date: 20060501
  Serious: Yes (Hospitalization)
  Sender: FDA-Public Use
  Company Number: US-MERCK-0502USA01891

PATIENT
  Age: 56 Year
  Sex: Male
  Weight: 89 kg

DRUGS (2)
  1. VIOXX [Suspect]
     Indication: OSTEOARTHRITIS
     Route: 048
     Dates: start: 20030101, end: 20040808
  2. ZOCOR [Concomitant]
     Route: 048
     Dates: start: 20010301

REACTIONS (7)
  - CORONARY ARTERY DISEASE [None]
  - DEPRESSION [None]
  - EMOTIONAL DISTRESS [None]
  - HYPERTENSION [None]
  - MYOCARDIAL INFARCTION [None]
  - OEDEMA [None]
  - SWELLING [None]
